FAERS Safety Report 5389306-X (Version None)
Quarter: 2007Q3

REPORT INFORMATION
  Report Type: 
  Country: None (occurrence: None)
  Receive Date: 20070717
  Receipt Date: 20070706
  Transmission Date: 20080115
  Serious: Yes (Life-Threatening, Other)
  Sender: FDA-Public Use
  Company Number: DE-JNJFOC-20070701472

PATIENT
  Age: 57 Year
  Sex: Female

DRUGS (8)
  1. REMICADE [Suspect]
     Route: 042
  2. REMICADE [Suspect]
     Route: 042
  3. REMICADE [Suspect]
     Indication: DRUG USE FOR UNKNOWN INDICATION
     Route: 042
  4. CYCLOSPORINE [Concomitant]
  5. URAPIDIL [Concomitant]
  6. ANTIBIOTICS [Concomitant]
  7. ATG 3 [Concomitant]
  8. MYCOPHENOLAT [Concomitant]

REACTIONS (1)
  - ANAEMIA [None]
